FAERS Safety Report 7571439-0 (Version None)
Quarter: 2011Q2

REPORT INFORMATION
  Report Type: 
  Country: None (occurrence: None)
  Receive Date: 20110624
  Receipt Date: 20110621
  Transmission Date: 20111010
  Serious: Yes (Death)
  Sender: FDA-Public Use
  Company Number: PHHY2011DK54758

PATIENT
  Sex: Female
  Weight: 69 kg

DRUGS (4)
  1. MORFIN ^DAK^ [Concomitant]
     Indication: PAIN
  2. TEMODAL [Suspect]
     Indication: NEUROENDOCRINE TUMOUR
     Dosage: 320 MG, QD FOR FIVE DAYS EVERY 4TH WEEK
     Route: 048
     Dates: start: 20110412, end: 20110515
  3. ONDANSETRON [Suspect]
     Indication: NAUSEA
     Dosage: 8 MG, TID
     Route: 048
     Dates: start: 20110512
  4. PREDNISOLONE [Concomitant]
     Indication: NAUSEA
     Dates: start: 20110512

REACTIONS (3)
  - LARGE INTESTINE PERFORATION [None]
  - SEPTIC SHOCK [None]
  - PERITONITIS [None]
